FAERS Safety Report 18779253 (Version 2)
Quarter: 2021Q1

REPORT INFORMATION
  Report Type: Report from Study
  Country: None (occurrence: US)
  Receive Date: 20210125
  Receipt Date: 20210226
  Transmission Date: 20210419
  Serious: Yes (Hospitalization)
  Sender: FDA-Public Use
  Company Number: US-ABBVIE-21K-163-3742726-00

PATIENT
  Age: 70 Year
  Sex: Female
  Weight: 72.64 kg

DRUGS (5)
  1. METOPROLOL. [Concomitant]
     Active Substance: METOPROLOL
     Indication: CARDIAC DISORDER
  2. ISOSORBIDE. [Concomitant]
     Active Substance: ISOSORBIDE
     Indication: CARDIAC DISORDER
  3. HUMIRA [Suspect]
     Active Substance: ADALIMUMAB
     Indication: CROHN^S DISEASE
     Route: 058
     Dates: start: 2015, end: 2018
  4. PFIZER?BIONTECH COVID?19 VACCINE [Concomitant]
     Active Substance: TOZINAMERAN
     Indication: COVID-19 IMMUNISATION
     Dosage: PFIZER
     Route: 030
     Dates: start: 20210212, end: 20210212
  5. HUMIRA [Suspect]
     Active Substance: ADALIMUMAB
     Route: 058
     Dates: start: 201908

REACTIONS (9)
  - Haematocrit decreased [Recovering/Resolving]
  - Amnesia [Recovered/Resolved]
  - Colitis [Recovering/Resolving]
  - Anaemia [Recovering/Resolving]
  - Blood potassium decreased [Recovered/Resolved]
  - Crohn^s disease [Not Recovered/Not Resolved]
  - Blood magnesium decreased [Recovered/Resolved]
  - Occult blood [Recovering/Resolving]
  - Mobility decreased [Recovered/Resolved]

NARRATIVE: CASE EVENT DATE: 202012
